FAERS Safety Report 5140837-7 (Version None)
Quarter: 2006Q4

REPORT INFORMATION
  Report Type: 
  Country: None (occurrence: None)
  Receive Date: 20061031
  Receipt Date: 20061026
  Transmission Date: 20070319
  Serious: Yes (Life-Threatening)
  Sender: FDA-Public Use
  Company Number: FR-MERCK-0610FRA00067

PATIENT
  Age: 79 Year
  Sex: Female
  Weight: 89 kg

DRUGS (14)
  1. COZAAR [Suspect]
     Indication: HYPERTENSION
     Route: 048
  2. HYDROCHLOROTHIAZIDE [Suspect]
     Indication: HYPERTENSION
     Route: 048
  3. FUROSEMIDE [Suspect]
     Indication: HYPERTENSION
     Route: 048
  4. METFORMIN HYDROCHLORIDE [Concomitant]
     Indication: DIABETES MELLITUS
     Route: 048
  5. CELIPROLOL HYDROCHLORIDE [Concomitant]
     Route: 048
  6. RILMENIDINE PHOSPHATE [Concomitant]
     Indication: HYPERTENSION
     Route: 048
  7. FENOFIBRATE [Concomitant]
     Indication: DYSLIPIDAEMIA
     Route: 048
  8. GABAPENTIN [Concomitant]
     Route: 048
  9. ALLOPURINOL SODIUM [Concomitant]
     Route: 048
  10. LORAZEPAM [Concomitant]
     Route: 048
  11. ACETAMINOPHEN AND PROPOXYPHENE HYDROCHLORIDE [Concomitant]
     Route: 048
  12. SERTRALINE HYDROCHLORIDE [Concomitant]
     Route: 048
  13. ALPRAZOLAM [Concomitant]
     Route: 048
  14. ENOXAPARIN SODIUM [Concomitant]
     Route: 058

REACTIONS (3)
  - DRUG INTERACTION [None]
  - HYPERKALAEMIA [None]
  - RENAL FAILURE ACUTE [None]
